FAERS Safety Report 18689209 (Version 1)
Quarter: 2020Q4

REPORT INFORMATION
  Report Type: Spontaneous
  Country: IN (occurrence: IN)
  Receive Date: 20201231
  Receipt Date: 20201231
  Transmission Date: 20210114
  Serious: Yes (Hospitalization, Other)
  Sender: FDA-Public Use
  Company Number: IN-GRANULES-IN-2020GRALIT00120

PATIENT
  Sex: Female

DRUGS (1)
  1. GABAPENTIN. [Suspect]
     Active Substance: GABAPENTIN
     Indication: NECK PAIN
     Route: 048

REACTIONS (3)
  - Ulcerative keratitis [Recovered/Resolved]
  - Symblepharon [Recovered/Resolved]
  - Stevens-Johnson syndrome [Recovered/Resolved]
